FAERS Safety Report 9342869 (Version 2)
Quarter: 2013Q3

REPORT INFORMATION
  Report Type: Spontaneous
  Country: US (occurrence: US)
  Receive Date: 20130611
  Receipt Date: 20130802
  Transmission Date: 20140515
  Serious: Yes (Other)
  Sender: FDA-Public Use
  Company Number: US-JNJFOC-20130601885

PATIENT
  Age: 11 Year
  Sex: Female
  Weight: 31.3 kg

DRUGS (2)
  1. ZYRTEC IR [Suspect]
     Route: 048
  2. ZYRTEC IR [Suspect]
     Indication: SEASONAL ALLERGY
     Route: 048
     Dates: start: 20130425, end: 20130529

REACTIONS (9)
  - Suicidal ideation [Recovering/Resolving]
  - Fear [Recovering/Resolving]
  - Anxiety [Recovering/Resolving]
  - Panic reaction [Recovering/Resolving]
  - Emotional disorder [Recovering/Resolving]
  - Morbid thoughts [Recovering/Resolving]
  - Pain [Recovering/Resolving]
  - Anger [Recovering/Resolving]
  - Pruritus [Recovering/Resolving]
